FAERS Safety Report 12561190 (Version 5)
Quarter: 2016Q4

REPORT INFORMATION
  Report Type: Report from Study
  Country: US (occurrence: US)
  Receive Date: 20160715
  Receipt Date: 20161111
  Transmission Date: 20170207
  Serious: Yes (Death, Hospitalization)
  Sender: FDA-Public Use
  Company Number: US-BAYER-2016-026883

PATIENT
  Age: 50 Year
  Sex: Male
  Weight: 126.98 kg

DRUGS (11)
  1. ADEMPAS [Suspect]
     Active Substance: RIOCIGUAT
     Indication: PULMONARY HYPERTENSION
     Dosage: UNK
     Route: 048
     Dates: start: 20140618
  2. ADEMPAS [Suspect]
     Active Substance: RIOCIGUAT
     Indication: PULMONARY HYPERTENSION
     Dosage: UNK
     Route: 048
     Dates: start: 20140618
  3. ADEMPAS [Suspect]
     Active Substance: RIOCIGUAT
     Indication: PULMONARY HYPERTENSION
     Dosage: 2.5 MG, TID
     Route: 048
  4. ADEMPAS [Suspect]
     Active Substance: RIOCIGUAT
     Indication: PULMONARY HYPERTENSION
     Dosage: 2.5 MG, TID
     Route: 048
  5. REMODULIN [Concomitant]
     Active Substance: TREPROSTINIL
     Dosage: UNK
     Route: 042
  6. ADEMPAS [Suspect]
     Active Substance: RIOCIGUAT
     Indication: PULMONARY HYPERTENSION
     Dosage: 2.5 MG, TID
     Route: 048
  7. TRACLEER [Concomitant]
     Active Substance: BOSENTAN
     Dosage: UNK
  8. XARELTO [Concomitant]
     Active Substance: RIVAROXABAN
     Dosage: UNK
  9. ADEMPAS [Suspect]
     Active Substance: RIOCIGUAT
     Indication: PULMONARY HYPERTENSION
     Dosage: 2.5 MG, TID
     Route: 048
  10. ADEMPAS [Suspect]
     Active Substance: RIOCIGUAT
     Indication: PULMONARY HYPERTENSION
     Dosage: 2.5 MG, TID
     Route: 048
  11. REMODULIN [Concomitant]
     Active Substance: TREPROSTINIL
     Dosage: UNK

REACTIONS (23)
  - Sepsis [Unknown]
  - Arthralgia [Unknown]
  - Death [Fatal]
  - Fluid retention [None]
  - Pyrexia [Unknown]
  - Product use issue [None]
  - Blood potassium decreased [None]
  - Gait disturbance [Unknown]
  - Joint warmth [Unknown]
  - Infusion site pain [None]
  - Device related infection [Unknown]
  - Fluid retention [None]
  - Cardiac failure congestive [None]
  - Infusion site pain [Unknown]
  - Infusion site erythema [None]
  - Hospitalisation [None]
  - Blood magnesium decreased [None]
  - Dehydration [None]
  - Infusion site pain [None]
  - Application site pain [None]
  - Injection site irritation [None]
  - Fluid retention [None]
  - Infusion site pain [None]

NARRATIVE: CASE EVENT DATE: 201602
